FAERS Safety Report 4380847-0 (Version None)
Quarter: 2004Q2

REPORT INFORMATION
  Report Type: 
  Country: None (occurrence: None)
  Receive Date: 20040616
  Receipt Date: 20040607
  Transmission Date: 20050107
  Serious: Yes (Hospitalization)
  Sender: FDA-Public Use
  Company Number: JP-2004-026009

PATIENT
  Age: 15 Year
  Sex: Male

DRUGS (1)
  1. MAGNEVIST [Suspect]
     Indication: NUCLEAR MAGNETIC RESONANCE IMAGING
     Dosage: 10 ML, 1 DOSE, INTRAVENOUS
     Route: 042
     Dates: start: 20040518, end: 20040518

REACTIONS (10)
  - ASTHENIA [None]
  - CHEST PAIN [None]
  - CONVULSION [None]
  - COUGH [None]
  - DRUG HYPERSENSITIVITY [None]
  - NASAL CONGESTION [None]
  - OXYGEN SATURATION DECREASED [None]
  - PAIN [None]
  - RHINORRHOEA [None]
  - THIRST [None]
